FAERS Safety Report 8979349 (Version 1)
Quarter: 2012Q4

REPORT INFORMATION
  Report Type: Report from Study
  Country: US (occurrence: US)
  Receive Date: 20121221
  Receipt Date: 20121221
  Transmission Date: 20130627
  Serious: Yes (Hospitalization)
  Sender: FDA-Public Use
  Company Number: US-ROCHE-1172155

PATIENT
  Age: 52 Year
  Sex: Female
  Weight: 92.16 kg

DRUGS (13)
  1. VITAMIN B [Concomitant]
  2. RANITIDINE [Concomitant]
  3. K-TABS [Concomitant]
  4. MEDROL [Concomitant]
     Dosage: 40-60 mg
     Route: 065
  5. OMALIZUMAB [Suspect]
     Indication: ASTHMA
     Route: 058
     Dates: start: 20070515
  6. FORADIL [Concomitant]
  7. NOVAHISTEX [Concomitant]
  8. FLOVENT [Concomitant]
  9. XOPENEX HFA [Concomitant]
  10. XOPENEX [Concomitant]
  11. FLONASE [Concomitant]
  12. LASIX [Concomitant]
  13. NEXIUM [Concomitant]

REACTIONS (1)
  - Asthma [Unknown]
